FAERS Safety Report 14528665 (Version 2)
Quarter: 2018Q1

REPORT INFORMATION
  Report Type: Spontaneous
  Country: JP (occurrence: JP)
  Receive Date: 20180214
  Receipt Date: 20180221
  Transmission Date: 20180509
  Serious: Yes (Other)
  Sender: FDA-Public Use
  Company Number: JP-BRISTOL-MYERS SQUIBB COMPANY-BMS-2016-056815

PATIENT
  Age: 69 Year
  Sex: Female

DRUGS (5)
  1. IRINOTECAN [Suspect]
     Active Substance: IRINOTECAN
     Indication: NEUROENDOCRINE CARCINOMA
     Route: 065
  2. BRIPLATIN [Suspect]
     Active Substance: CISPLATIN
     Indication: NEUROENDOCRINE CARCINOMA
     Route: 065
  3. IRINOTECAN [Suspect]
     Active Substance: IRINOTECAN
     Indication: MALIGNANT NEOPLASM OF AMPULLA OF VATER
     Dosage: 60 MG/M2, QCYCLE
     Route: 065
  4. BRIPLATIN [Suspect]
     Active Substance: CISPLATIN
     Indication: MALIGNANT NEOPLASM OF AMPULLA OF VATER
     Dosage: 60 MG/M2, QCYCLE
     Route: 065
  5. MITOTANE [Suspect]
     Active Substance: MITOTANE
     Indication: HYPERCORTICOIDISM
     Dosage: 3 G, QD
     Route: 065

REACTIONS (2)
  - Product use in unapproved indication [Unknown]
  - Haematotoxicity [Unknown]
